FAERS Safety Report 7473398-8 (Version None)
Quarter: 2011Q2

REPORT INFORMATION
  Report Type: 
  Country: None (occurrence: None)
  Receive Date: 20110511
  Receipt Date: 20100908
  Transmission Date: 20111010
  Serious: Yes (Other)
  Sender: FDA-Public Use
  Company Number: PHHY2010AR91491

PATIENT
  Sex: Female

DRUGS (2)
  1. TASIGNA [Suspect]
     Dosage: 800 MG PER DAY
     Dates: start: 20110128
  2. TASIGNA [Suspect]
     Dosage: 800 MG, UNK
     Dates: end: 20110127

REACTIONS (6)
  - DEPRESSED MOOD [None]
  - DECREASED APPETITE [None]
  - GYNAECOLOGICAL EXAMINATION ABNORMAL [None]
  - BLOOD CHOLESTEROL INCREASED [None]
  - BLOOD BILIRUBIN INCREASED [None]
  - PLATELET COUNT DECREASED [None]
